FAERS Safety Report 7475859-4 (Version None)
Quarter: 2011Q2

REPORT INFORMATION
  Report Type: 
  Country: None (occurrence: None)
  Receive Date: 20110512
  Receipt Date: 20110509
  Transmission Date: 20111010
  Serious: Yes (Hospitalization)
  Sender: FDA-Public Use
  Company Number: IE-MEDIMMUNE-MEDI-0012920

PATIENT
  Sex: Male
  Weight: 3.65 kg

DRUGS (4)
  1. GAVISCON [Concomitant]
     Route: 048
  2. SYNAGIS [Suspect]
     Route: 030
     Dates: end: 20110120
  3. KAPSOVIT [Concomitant]
     Route: 048
  4. FERROUS SULFATE TAB [Concomitant]
     Route: 048

REACTIONS (1)
  - BRONCHIOLITIS [None]
